FAERS Safety Report 8975002 (Version 2)
Quarter: 2013Q1

REPORT INFORMATION
  Report Type: Report from Study
  Country: DE (occurrence: DE)
  Receive Date: 20121220
  Receipt Date: 20130118
  Transmission Date: 20140127
  Serious: Yes (Death)
  Sender: FDA-Public Use
  Company Number: DE-ASTELLAS-2012EU010813

PATIENT
  Age: 67 Year
  Sex: Male

DRUGS (1)
  1. ENZALUTAMIDE [Suspect]
     Dosage: UNK
     Route: 065
     Dates: start: 20121030, end: 20121128

REACTIONS (2)
  - Disease progression [Fatal]
  - General physical health deterioration [Fatal]
